FAERS Safety Report 15727105 (Version 1)
Quarter: 2018Q4

REPORT INFORMATION
  Report Type: Report from Study
  Country: GB (occurrence: GB)
  Receive Date: 20181217
  Receipt Date: 20181217
  Transmission Date: 20190205
  Serious: Yes (Hospitalization)
  Sender: FDA-Public Use
  Company Number: GB-ROCHE-2229652

PATIENT
  Sex: Female

DRUGS (2)
  1. METHOTREXATE. [Concomitant]
     Active Substance: METHOTREXATE
     Indication: RHEUMATOID ARTHRITIS
  2. RITUXIMAB. [Suspect]
     Active Substance: RITUXIMAB
     Indication: RHEUMATOID ARTHRITIS
     Route: 042
     Dates: start: 20150807, end: 20170912

REACTIONS (6)
  - Peripheral swelling [Unknown]
  - Femoral neck fracture [Unknown]
  - Packed red blood cell transfusion [Unknown]
  - Fall [Unknown]
  - Humerus fracture [Unknown]
  - Tachycardia [Unknown]

NARRATIVE: CASE EVENT DATE: 20180427
